FAERS Safety Report 12069263 (Version 4)
Quarter: 2017Q1

REPORT INFORMATION
  Report Type: Report from Study
  Country: ES (occurrence: ES)
  Receive Date: 20160211
  Receipt Date: 20170320
  Transmission Date: 20170428
  Serious: Yes (Hospitalization)
  Sender: FDA-Public Use
  Company Number: ES-ROCHE-1652155

PATIENT
  Age: 31 Year
  Sex: Female
  Weight: 55 kg

DRUGS (7)
  1. GLYCERIN ENEMA OHTA [Concomitant]
     Indication: CONSTIPATION
     Route: 065
     Dates: start: 201206, end: 201206
  2. RITUXIMAB [Suspect]
     Active Substance: RITUXIMAB
     Indication: NON-HODGKIN^S LYMPHOMA
     Dosage: VOLUME OF LAST RITUXIMAB TAKEN: 250ML?DOSE OF LAST RITUXIMAB TAKEN: 2.56 MG/ML?DATE OF MOST RECENT D
     Route: 042
     Dates: start: 20120321
  3. BENDAMUSTINE [Suspect]
     Active Substance: BENDAMUSTINE
     Indication: NON-HODGKIN^S LYMPHOMA
     Dosage: DATE OF MOST RECENT DOSE PRIOR TO AE ONSET ON 10/AUG/2012 (DOSE: 153.9 MG)
     Route: 042
     Dates: start: 20120321
  4. IMMUNE GLOBULIN NOS [Concomitant]
     Active Substance: IMMUNE GLOBULIN NOS
     Route: 065
     Dates: start: 20160914
  5. PIPERACILLIN/TAZOBACTAM [Concomitant]
     Active Substance: PIPERACILLIN SODIUM\TAZOBACTAM SODIUM
     Route: 065
     Dates: start: 20151026, end: 20151105
  6. DEXCHLORPHENIRAMINE [Concomitant]
     Active Substance: DEXCHLORPHENIRAMINE
     Indication: PREMEDICATION
     Route: 065
     Dates: start: 20120321
  7. PARACETAMOL [Concomitant]
     Active Substance: ACETAMINOPHEN
     Indication: PREMEDICATION
     Route: 065
     Dates: start: 20120321

REACTIONS (1)
  - Intestinal villi atrophy [Not Recovered/Not Resolved]

NARRATIVE: CASE EVENT DATE: 20151026
